FAERS Safety Report 9858311 (Version 1)
Quarter: 2014Q1

REPORT INFORMATION
  Report Type: Spontaneous
  Country: JP (occurrence: JP)
  Receive Date: 20140131
  Receipt Date: 20140131
  Transmission Date: 20141002
  Serious: Yes (Hospitalization, Other)
  Sender: FDA-Public Use
  Company Number: JP-ELI_LILLY_AND_COMPANY-JP201401008217

PATIENT
  Age: 46 Year
  Sex: Male
  Weight: 54 kg

DRUGS (14)
  1. ALIMTA [Suspect]
     Indication: LUNG ADENOCARCINOMA STAGE IV
     Dosage: 500 MG/M2, OTHER
     Route: 042
     Dates: start: 20130404, end: 20130521
  2. ALIMTA [Suspect]
     Dosage: 400 MG/M2, OTHER
     Route: 042
     Dates: start: 20130716, end: 20130806
  3. ALIMTA [Suspect]
     Dosage: 300 MG/M2, OTHER
     Route: 042
     Dates: start: 20130903, end: 20131001
  4. CARBOPLATIN [Concomitant]
     Indication: LUNG ADENOCARCINOMA STAGE IV
     Dosage: UNK
     Route: 042
     Dates: start: 20130404, end: 20130903
  5. BEVACIZUMAB [Concomitant]
     Indication: LUNG ADENOCARCINOMA STAGE IV
     Dosage: 15 MG/KG, OTHER
     Dates: start: 20130404, end: 20131001
  6. BEVACIZUMAB [Concomitant]
     Dosage: UNK
     Dates: start: 20130716
  7. OXYNORM [Concomitant]
     Indication: CANCER PAIN
     Dosage: 10 MG, UNK
     Route: 048
     Dates: start: 20130321
  8. CALONAL [Concomitant]
     Indication: CANCER PAIN
     Dosage: 1000 MG, BID
     Route: 048
     Dates: start: 20130521
  9. NEXIUM [Concomitant]
     Indication: GASTRITIS PROPHYLAXIS
     Dosage: 20 MG, QD
     Route: 048
     Dates: start: 20130313
  10. TRAZODONE HYDROCHLORIDE [Concomitant]
     Indication: DEPRESSION
     Dosage: 150 MG, TID
     Route: 048
     Dates: start: 2010
  11. ALPRAZOLAM [Concomitant]
     Indication: DEPRESSION
     Dosage: 1.2 MG, TID
     Route: 048
     Dates: start: 2003
  12. MUCOSOLVAN [Concomitant]
     Indication: PRODUCTIVE COUGH
     Dosage: 45 MG, TID
     Route: 048
     Dates: start: 20130917
  13. MAGLAX [Concomitant]
     Indication: CONSTIPATION PROPHYLAXIS
     Dosage: 1 DF, QD
     Route: 048
     Dates: start: 20130321
  14. ZOMETA [Concomitant]
     Indication: BONE CANCER METASTATIC
     Dosage: 4 MG, EVERY 3 WEEK
     Route: 042
     Dates: start: 20130521

REACTIONS (4)
  - Disseminated intravascular coagulation [Recovered/Resolved]
  - Lung abscess [Recovered/Resolved]
  - Platelet count decreased [Unknown]
  - Renal impairment [Unknown]
